FAERS Safety Report 12158182 (Version 1)
Quarter: 2016Q1

REPORT INFORMATION
  Report Type: Spontaneous
  Country: US (occurrence: US)
  Receive Date: 20160308
  Receipt Date: 20160308
  Transmission Date: 20160526
  Serious: Yes (Hospitalization)
  Sender: FDA-Public Use
  Company Number: US-JNJFOC-20140924951

PATIENT
  Age: 66 Year
  Sex: Male

DRUGS (10)
  1. PRILOSEC [Concomitant]
     Active Substance: OMEPRAZOLE MAGNESIUM
  2. FERROUS SULFATE [Concomitant]
     Active Substance: FERROUS SULFATE\FERROUS SULFATE, DRIED
  3. FLONASE [Concomitant]
     Active Substance: FLUTICASONE PROPIONATE
     Dosage: 50 MCG
  4. ZYVOX [Concomitant]
     Active Substance: LINEZOLID
  5. METROGEL [Concomitant]
     Active Substance: METRONIDAZOLE
  6. IMMUNOGLOBULIN [Concomitant]
     Active Substance: HUMAN IMMUNOGLOBULIN G
     Route: 042
     Dates: start: 20130923, end: 20140825
  7. FLOMAX [Concomitant]
     Active Substance: TAMSULOSIN HYDROCHLORIDE
  8. IMMUNOGLOBULIN [Concomitant]
     Active Substance: HUMAN IMMUNOGLOBULIN G
     Route: 042
     Dates: end: 20140905
  9. IMBRUVICA [Suspect]
     Active Substance: IBRUTINIB
     Indication: CHRONIC LYMPHOCYTIC LEUKAEMIA
     Route: 065
     Dates: start: 20140614, end: 20140825
  10. IMBRUVICA [Suspect]
     Active Substance: IBRUTINIB
     Indication: CHRONIC LYMPHOCYTIC LEUKAEMIA
     Route: 065
     Dates: start: 2014, end: 20140915

REACTIONS (22)
  - Cough [Unknown]
  - Clostridium difficile infection [Unknown]
  - Thrombocytopenia [Recovering/Resolving]
  - Pyrexia [Unknown]
  - Cardiac disorder [Unknown]
  - Swelling face [Recovered/Resolved]
  - Neutropenia [Recovering/Resolving]
  - Sweating fever [Unknown]
  - Dyspnoea [Unknown]
  - Malaise [Unknown]
  - Pancytopenia [Recovering/Resolving]
  - Peripheral swelling [Unknown]
  - White blood cell count increased [Recovered/Resolved]
  - Diarrhoea [Unknown]
  - Anaemia [Recovering/Resolving]
  - Chills [Unknown]
  - Disease progression [Not Recovered/Not Resolved]
  - Skin hypertrophy [Unknown]
  - Nutritional condition abnormal [Unknown]
  - Fatigue [Unknown]
  - Aspergillus infection [Recovered/Resolved]
  - Pain in extremity [Unknown]

NARRATIVE: CASE EVENT DATE: 20140828
